FAERS Safety Report 20391605 (Version 2)
Quarter: 2022Q1

REPORT INFORMATION
  Report Type: Report from Study
  Country: US (occurrence: None)
  Receive Date: 20220128
  Receipt Date: 20220203
  Transmission Date: 20220423
  Serious: Yes (Hospitalization)
  Sender: FDA-Public Use
  Company Number: US-Eisai Medical Research-EC-2022-107390

PATIENT
  Age: 74 Year
  Sex: Female

DRUGS (14)
  1. LENVIMA [Suspect]
     Active Substance: LENVATINIB
     Indication: Uterine cancer
     Route: 048
     Dates: start: 20211022, end: 202112
  2. LENVIMA [Suspect]
     Active Substance: LENVATINIB
     Route: 048
     Dates: start: 20220120
  3. COLACE [Concomitant]
     Active Substance: DOCUSATE SODIUM
  4. CRANBERRY [Concomitant]
     Active Substance: CRANBERRY
  5. FISH OIL [Concomitant]
     Active Substance: FISH OIL
  6. CHONDROITIN SULFATE (BOVINE)\GLUCOSAMINE SULFATE [Concomitant]
     Active Substance: CHONDROITIN SULFATE (BOVINE)\GLUCOSAMINE SULFATE
  7. MINERALS\VITAMINS [Concomitant]
     Active Substance: MINERALS\VITAMINS
  8. KEYTRUDA [Concomitant]
     Active Substance: PEMBROLIZUMAB
  9. VITAMINS [Concomitant]
     Active Substance: VITAMINS
  10. PREDNISOLONE ACETATE [Concomitant]
     Active Substance: PREDNISOLONE ACETATE
  11. PROBIOTICS NOS [Concomitant]
     Active Substance: PROBIOTICS NOS
  12. PROLIA [Concomitant]
     Active Substance: DENOSUMAB
  13. RHOPRESSA [Concomitant]
     Active Substance: NETARSUDIL MESYLATE
  14. TRAMADOL HCL [Concomitant]
     Active Substance: TRAMADOL HYDROCHLORIDE

REACTIONS (3)
  - Pneumonia [Unknown]
  - Fatigue [Unknown]
  - Rash [Unknown]

NARRATIVE: CASE EVENT DATE: 20211201
